FAERS Safety Report 4643048-4 (Version None)
Quarter: 2005Q2

REPORT INFORMATION
  Report Type: 
  Country: None (occurrence: None)
  Receive Date: 20050421
  Receipt Date: 20050218
  Transmission Date: 20051028
  Serious: Yes (Hospitalization, Disabling, Congenital Anomaly)
  Sender: FDA-Public Use
  Company Number: 2005026830

PATIENT
  Age: 11 Year
  Sex: Female
  Weight: 30 kg

DRUGS (4)
  1. GENOTROPIN [Suspect]
     Indication: ILL-DEFINED DISORDER
     Dosage: 0.7 MG (0.7 MG, DAILY), SUBCUTANEOUS; SEE IMAGE
     Route: 058
     Dates: start: 20040402, end: 20041130
  2. GENOTROPIN [Suspect]
     Indication: ILL-DEFINED DISORDER
     Dosage: 0.7 MG (0.7 MG, DAILY), SUBCUTANEOUS; SEE IMAGE
     Route: 058
     Dates: start: 20041201
  3. ALENDRONATE SODIUM [Suspect]
     Indication: ILL-DEFINED DISORDER
     Dosage: (35 MG, WEEKLY)
     Dates: start: 20021201, end: 20041201
  4. VITAMINERAL (VITAMINS, MINERALS) [Suspect]
     Indication: ILL-DEFINED DISORDER
     Dosage: 800 I.U. (800 I.U., DAILY)
     Dates: start: 20040402, end: 20041201

REACTIONS (2)
  - FALL [None]
  - FEMUR FRACTURE [None]
